FAERS Safety Report 7275916-1 (Version None)
Quarter: 2011Q1

REPORT INFORMATION
  Report Type: 
  Country: None (occurrence: None)
  Receive Date: 20110204
  Receipt Date: 20110131
  Transmission Date: 20110831
  Serious: Yes (Other)
  Sender: FDA-Public Use
  Company Number: A0844779A

PATIENT
  Sex: Female

DRUGS (8)
  1. TOPROL-XL [Concomitant]
     Dosage: 25MG PER DAY
  2. PROMACTA [Suspect]
     Indication: THROMBOCYTOPENIA
     Route: 048
     Dates: start: 20090226, end: 20100219
  3. SPIRONOLACTONE [Concomitant]
     Dosage: 50MG PER DAY
  4. HYDROXYCHLOROQUINE SULFATE [Concomitant]
     Dosage: 400MG PER DAY
  5. DECADRON [Concomitant]
  6. PLAQUENIL [Concomitant]
  7. WARFARIN [Concomitant]
     Dosage: 5MG PER DAY
  8. ACTONEL [Concomitant]
     Dosage: 150MG MONTHLY

REACTIONS (2)
  - BLOOD ALKALINE PHOSPHATASE INCREASED [None]
  - DRUG INEFFECTIVE [None]
